FAERS Safety Report 20189742 (Version 1)
Quarter: 2021Q4

REPORT INFORMATION
  Report Type: Spontaneous
  Country: JP (occurrence: JP)
  Receive Date: 20211215
  Receipt Date: 20211215
  Transmission Date: 20220303
  Serious: Yes (Life-Threatening, Hospitalization, Other)
  Sender: FDA-Public Use
  Company Number: JP-PFIZER INC-202101606719

PATIENT
  Age: 52 Year
  Sex: Male
  Weight: 72.3 kg

DRUGS (6)
  1. AZITHROMYCIN DIHYDRATE [Suspect]
     Active Substance: AZITHROMYCIN DIHYDRATE
     Indication: Oropharyngeal discomfort
     Dosage: 500 MG, 1X/DAY
     Route: 048
     Dates: start: 20211117, end: 20211117
  2. AZITHROMYCIN DIHYDRATE [Suspect]
     Active Substance: AZITHROMYCIN DIHYDRATE
     Indication: Nasal discomfort
  3. PRANOPROFEN [Concomitant]
     Active Substance: PRANOPROFEN
     Dosage: 75 MG, 3X/DAY
     Route: 048
     Dates: start: 20211117, end: 20211117
  4. AMBROXOL [Concomitant]
     Active Substance: AMBROXOL
     Dosage: 15 MG, 3X/DAY
     Route: 048
     Dates: start: 20211117, end: 20211117
  5. CHLORPHENIRAMINE MALEATE [Concomitant]
     Active Substance: CHLORPHENIRAMINE MALEATE
     Dosage: 6 MG, 2X/DAY
     Route: 048
     Dates: start: 20211117, end: 20211117
  6. ALLOPURINOL [Concomitant]
     Active Substance: ALLOPURINOL
     Indication: Hyperuricaemia
     Dosage: 200 MG, 1X/DAY
     Route: 048
     Dates: start: 20190913

REACTIONS (4)
  - Anaphylactic reaction [Recovering/Resolving]
  - Erythema [Recovering/Resolving]
  - Angioedema [Recovering/Resolving]
  - Blood pressure increased [Recovering/Resolving]

NARRATIVE: CASE EVENT DATE: 20211117
